FAERS Safety Report 10781134 (Version 1)
Quarter: 2015Q1

REPORT INFORMATION
  Report Type: Spontaneous
  Country: FR (occurrence: FR)
  Receive Date: 20150210
  Receipt Date: 20150210
  Transmission Date: 20150721
  Serious: Yes (Hospitalization)
  Sender: FDA-Public Use
  Company Number: FR-DSJP-DSE-2015-103740

PATIENT

DRUGS (9)
  1. VIMPAT [Suspect]
     Active Substance: LACOSAMIDE
     Dosage: 50 MG, QD
     Route: 048
     Dates: start: 201412
  2. ZEBINIX [Interacting]
     Active Substance: ESLICARBAZEPINE ACETATE
     Indication: EPILEPSY
     Dosage: 400 MG, EVERY OTHER DAY
     Route: 048
     Dates: start: 20141119, end: 201412
  3. VIMPAT [Suspect]
     Active Substance: LACOSAMIDE
     Indication: EPILEPSY
     Dosage: 200 UNK, UNK
     Route: 048
     Dates: start: 20140908, end: 20141119
  4. PREVISCAN                          /00789001/ [Concomitant]
     Active Substance: FLUINDIONE
     Indication: PRODUCT USED FOR UNKNOWN INDICATION
     Dosage: 20 MG, QD
     Route: 048
  5. PREVISCAN                          /00789001/ [Concomitant]
     Active Substance: FLUINDIONE
     Dosage: 10 MG, QD
     Route: 048
  6. NEURONTIN [Concomitant]
     Active Substance: GABAPENTIN
     Indication: EPILEPSY
     Dosage: 2400 MG, QD
     Route: 048
     Dates: start: 20120101
  7. ZEBINIX [Interacting]
     Active Substance: ESLICARBAZEPINE ACETATE
     Dosage: 400 MG, QD
     Route: 048
     Dates: start: 201412, end: 20141225
  8. ALTEISDUO 40 MG/ 12.5 MG [Suspect]
     Active Substance: HYDROCHLOROTHIAZIDE\OLMESARTAN MEDOXOMIL
     Indication: PRODUCT USED FOR UNKNOWN INDICATION
     Dosage: 40/12.5 MG, QD
     Dates: start: 201406
  9. VIMPAT [Suspect]
     Active Substance: LACOSAMIDE
     Dosage: 100 MG, QD
     Route: 048
     Dates: start: 20141120, end: 201412

REACTIONS (4)
  - Drug interaction [Recovered/Resolved]
  - Dizziness [Unknown]
  - Hyponatraemia [Recovered/Resolved]
  - Depressed mood [Unknown]

NARRATIVE: CASE EVENT DATE: 201409
